FAERS Safety Report 7852019-6 (Version None)
Quarter: 2011Q3

REPORT INFORMATION
  Report Type: 
  Country: None (occurrence: None)
  Receive Date: 20110906
  Receipt Date: 20110706
  Transmission Date: 20111222
  Serious: No
  Sender: FDA-Public Use
  Company Number: 201107012

PATIENT
  Age: 77 Year
  Sex: Male
  Weight: 81.6475 kg

DRUGS (4)
  1. ANESTHETICS, LOCAL (ANESTHETICS, LOCAL) [Suspect]
     Dates: start: 20110415, end: 20110415
  2. ANESTHETICS, GENERAL (ANESTHETICS, GENERAL) [Suspect]
     Dates: start: 20101208, end: 20101208
  3. XIAFLEX [Suspect]
     Indication: DUPUYTREN'S CONTRACTURE
     Dosage: 1 IN 1 D, INTRALESIONAL, 1 IN 1 D, INTRALESIONAL
     Route: 026
     Dates: start: 20101207, end: 20101207
  4. XIAFLEX [Suspect]
     Indication: DUPUYTREN'S CONTRACTURE
     Dosage: 1 IN 1 D, INTRALESIONAL, 1 IN 1 D, INTRALESIONAL
     Route: 026
     Dates: start: 20110414, end: 20110414

REACTIONS (2)
  - INJECTION SITE SWELLING [None]
  - WRONG TECHNIQUE IN DRUG USAGE PROCESS [None]
